FAERS Safety Report 4830529-3 (Version None)
Quarter: 2005Q4

REPORT INFORMATION
  Report Type: 
  Country: None (occurrence: None)
  Receive Date: 20051115
  Receipt Date: 20051104
  Transmission Date: 20060501
  Serious: Yes (Hospitalization, Other)
  Sender: FDA-Public Use
  Company Number: 2005148215

PATIENT
  Age: 86 Year
  Sex: Male
  Weight: 56.246 kg

DRUGS (9)
  1. XANAX [Suspect]
     Indication: IRRITABLE BOWEL SYNDROME
     Dosage: 0.25 MG (0.25 MG, 1 IN 1 D); 0.5 MG (1 IN 1 D), ORAL
     Route: 048
     Dates: start: 20051014, end: 20051014
  2. XANAX [Suspect]
     Indication: STOMACH DISCOMFORT
     Dosage: 0.25 MG (0.25 MG, 1 IN 1 D); 0.5 MG (1 IN 1 D), ORAL
     Route: 048
     Dates: start: 20051014, end: 20051014
  3. XANAX [Suspect]
     Indication: IRRITABLE BOWEL SYNDROME
     Dosage: 0.25 MG (0.25 MG, 1 IN 1 D); 0.5 MG (1 IN 1 D), ORAL
     Route: 048
     Dates: start: 19960101
  4. XANAX [Suspect]
     Indication: STOMACH DISCOMFORT
     Dosage: 0.25 MG (0.25 MG, 1 IN 1 D); 0.5 MG (1 IN 1 D), ORAL
     Route: 048
     Dates: start: 19960101
  5. LISINOPRIL [Suspect]
     Indication: BLOOD PRESSURE
     Dosage: 20 MG (20 MG, 1 IN 1 D), ORAL
     Route: 048
     Dates: start: 20040101
  6. CORDARONE [Concomitant]
  7. LIPITOR [Concomitant]
  8. LEVOXYL [Concomitant]
  9. ASPIRIN [Concomitant]

REACTIONS (21)
  - ABDOMINAL PAIN UPPER [None]
  - ABNORMAL DREAMS [None]
  - ANXIETY [None]
  - BALANCE DISORDER [None]
  - BLOOD PRESSURE INCREASED [None]
  - CONTUSION [None]
  - CORONARY ARTERY OCCLUSION [None]
  - DISCOMFORT [None]
  - DIZZINESS [None]
  - DRUG INEFFECTIVE [None]
  - FALL [None]
  - FATIGUE [None]
  - FEELING ABNORMAL [None]
  - GAIT DISTURBANCE [None]
  - HEART RATE INCREASED [None]
  - MICTURITION URGENCY [None]
  - PHARMACEUTICAL PRODUCT COMPLAINT [None]
  - SLEEP DISORDER [None]
  - SOMNOLENCE [None]
  - STOMACH DISCOMFORT [None]
  - WEIGHT INCREASED [None]
